FAERS Safety Report 17142433 (Version 24)
Quarter: 2023Q2

REPORT INFORMATION
  Report Type: Spontaneous
  Country: US (occurrence: US)
  Receive Date: 20191211
  Receipt Date: 20230524
  Transmission Date: 20230721
  Serious: No
  Sender: FDA-Public Use
  Company Number: US-EISAI MEDICAL RESEARCH-EC-2019-066621

PATIENT
  Age: 82 Year
  Sex: Male

DRUGS (24)
  1. FYCOMPA [Suspect]
     Active Substance: PERAMPANEL
     Indication: Partial seizures
     Route: 048
     Dates: start: 20191122, end: 20191130
  2. FYCOMPA [Suspect]
     Active Substance: PERAMPANEL
     Route: 048
     Dates: start: 20191201, end: 20191206
  3. FYCOMPA [Suspect]
     Active Substance: PERAMPANEL
     Route: 048
     Dates: start: 20191207, end: 20200206
  4. FYCOMPA [Suspect]
     Active Substance: PERAMPANEL
     Route: 048
     Dates: start: 20200207, end: 202205
  5. FYCOMPA [Suspect]
     Active Substance: PERAMPANEL
     Dosage: 8 MG EVERY 3 DAYS AND 6 MG ON DAY 4
     Route: 048
     Dates: start: 202205, end: 2022
  6. FYCOMPA [Suspect]
     Active Substance: PERAMPANEL
     Route: 048
     Dates: start: 202205
  7. APTIOM [Suspect]
     Active Substance: ESLICARBAZEPINE ACETATE
     Indication: Product used for unknown indication
     Route: 065
  8. APTIOM [Suspect]
     Active Substance: ESLICARBAZEPINE ACETATE
     Dosage: DOSAGE AND FREQUENCY UNKNOWN (SLOW UP TITRATION)
     Route: 065
  9. APTIOM [Suspect]
     Active Substance: ESLICARBAZEPINE ACETATE
     Route: 065
  10. APTIOM [Suspect]
     Active Substance: ESLICARBAZEPINE ACETATE
     Dosage: DOSAGE AND FREQUENCY UNKNOWN (SLOW DOWN TITRATION)
     Route: 065
  11. APTIOM [Suspect]
     Active Substance: ESLICARBAZEPINE ACETATE
     Route: 065
  12. APTIOM [Suspect]
     Active Substance: ESLICARBAZEPINE ACETATE
     Route: 065
  13. MINERALS\VITAMINS [Suspect]
     Active Substance: MINERALS\VITAMINS
     Indication: Product used for unknown indication
     Dosage: DOSE AND FREQUENCY UNKNOWN
     Dates: start: 2023
  14. KEPPRA [Concomitant]
     Active Substance: LEVETIRACETAM
     Indication: Seizure
     Route: 048
  15. KEPPRA [Concomitant]
     Active Substance: LEVETIRACETAM
     Dosage: 1000 MG IN THE MORNING, 500 MG IN THE EVENING (EVERY DAY)
     Route: 048
  16. KEPPRA [Concomitant]
     Active Substance: LEVETIRACETAM
     Dosage: 700 MG IN THE MORNING, 1000 MG IN THE EVENING (EVERY DAY)
     Route: 048
  17. KEPPRA [Concomitant]
     Active Substance: LEVETIRACETAM
     Route: 048
  18. KEPPRA [Concomitant]
     Active Substance: LEVETIRACETAM
     Dosage: 100 MG IN MORNING AND 75 MG IN EVENING, DAILY
     Route: 048
  19. KEPPRA [Concomitant]
     Active Substance: LEVETIRACETAM
     Route: 048
  20. KEPPRA [Concomitant]
     Active Substance: LEVETIRACETAM
     Dosage: 1700 MG, FREQUENCY UNKNOWN
     Route: 048
  21. KEPPRA [Concomitant]
     Active Substance: LEVETIRACETAM
     Route: 048
  22. DILANTIN [Concomitant]
     Active Substance: PHENYTOIN
     Indication: Product used for unknown indication
     Route: 048
  23. DILANTIN [Concomitant]
     Active Substance: PHENYTOIN
     Route: 048
  24. DILANTIN [Concomitant]
     Active Substance: PHENYTOIN
     Route: 048
     Dates: end: 2020

REACTIONS (16)
  - Balance disorder [Not Recovered/Not Resolved]
  - Fall [Recovered/Resolved]
  - Amnesia [Not Recovered/Not Resolved]
  - Seizure [Unknown]
  - Epileptic aura [Unknown]
  - Insomnia [Unknown]
  - Slow speech [Unknown]
  - Speech disorder [Not Recovered/Not Resolved]
  - Gait disturbance [Not Recovered/Not Resolved]
  - Gastrooesophageal reflux disease [Not Recovered/Not Resolved]
  - Fatigue [Not Recovered/Not Resolved]
  - Dizziness [Unknown]
  - Neck pain [Unknown]
  - Partial seizures [Unknown]
  - Ataxia [Unknown]
  - Neck injury [Unknown]

NARRATIVE: CASE EVENT DATE: 20190101
